FAERS Safety Report 6852948-6 (Version None)
Quarter: 2010Q3

REPORT INFORMATION
  Report Type: 
  Country: None (occurrence: None)
  Receive Date: 20100717
  Receipt Date: 20071126
  Transmission Date: 20110219
  Serious: No
  Sender: FDA-Public Use
  Company Number: US-PFIZER INC-2007100690

PATIENT
  Sex: Female
  Weight: 45.454 kg

DRUGS (6)
  1. CHANTIX [Suspect]
     Indication: SMOKING CESSATION THERAPY
  2. BRETHINE [Concomitant]
  3. SYNTHROID [Concomitant]
     Indication: THYROID DISORDER
  4. ANTIHYPERTENSIVES [Concomitant]
     Indication: HYPERTENSION
  5. REVATIO [Concomitant]
  6. SPIRIVA [Concomitant]

REACTIONS (2)
  - NAUSEA [None]
  - VOMITING [None]
